FAERS Safety Report 9300586 (Version 3)
Quarter: 2013Q4

REPORT INFORMATION
  Report Type: Spontaneous
  Country: US (occurrence: US)
  Receive Date: 20130521
  Receipt Date: 20131220
  Transmission Date: 20140711
  Serious: Yes (Hospitalization, Disabling, Other)
  Sender: FDA-Public Use
  Company Number: US-009507513-1305USA010803

PATIENT
  Sex: Female
  Weight: 58.96 kg

DRUGS (1)
  1. NUVARING [Suspect]
     Indication: CONTRACEPTION
     Dosage: UNK
     Route: 067
     Dates: start: 2005, end: 2008

REACTIONS (22)
  - Pleurodesis [Unknown]
  - Cerebrovascular accident [Unknown]
  - Maternal exposure before pregnancy [Unknown]
  - Dyspnoea [Unknown]
  - Pulmonary embolism [Unknown]
  - Pulmonary haemorrhage [Unknown]
  - Heart rate increased [Unknown]
  - Haemoptysis [Recovered/Resolved]
  - Cholelithiasis [Unknown]
  - Genital herpes [Unknown]
  - Hysterectomy [Unknown]
  - Pneumothorax [Unknown]
  - Sarcoidosis [Not Recovered/Not Resolved]
  - Pleural disorder [Unknown]
  - Anaemia [Unknown]
  - Hypermagnesaemia [Recovered/Resolved]
  - Electrolyte imbalance [Recovered/Resolved]
  - Partial lung resection [Unknown]
  - Pulmonary mass [Unknown]
  - Lung disorder [Unknown]
  - Haemoptysis [Unknown]
  - Paralysis [Recovered/Resolved]
